FAERS Safety Report 20778999 (Version 1)
Quarter: 2022Q2

REPORT INFORMATION
  Report Type: 
  Country: None (occurrence: None)
  Receive Date: 20220503
  Receipt Date: 20220503
  Transmission Date: 20220721
  Serious: Yes (Life-Threatening, Hospitalization)
  Sender: FDA-Public Use
  Company Number: None

PATIENT
  Age: 25 Month
  Sex: Male

DRUGS (1)
  1. MORPHINE SULFATE [Suspect]
     Active Substance: MORPHINE SULFATE

REACTIONS (9)
  - Brain oedema [Recovered/Resolved]
  - Brain herniation [Recovered/Resolved]
  - Pulse absent [Recovered/Resolved]
  - Apnoeic attack [Recovered/Resolved]
  - Accidental exposure to product [Recovered/Resolved]
  - Agonal respiration [Recovered/Resolved]
  - Hypotension [Recovered/Resolved]
  - Hyperreflexia [Recovered/Resolved]
  - Pupil fixed [Recovered/Resolved]
